FAERS Safety Report 6457096-5 (Version None)
Quarter: 2009Q4

REPORT INFORMATION
  Report Type: 
  Country: None (occurrence: None)
  Receive Date: 20091125
  Receipt Date: 20091119
  Transmission Date: 20100525
  Serious: Yes (Hospitalization)
  Sender: FDA-Public Use
  Company Number: B0588938A

PATIENT
  Age: 57 Year
  Sex: Male
  Weight: 72 kg

DRUGS (3)
  1. AUGMENTIN [Suspect]
     Indication: APHTHOUS STOMATITIS
     Route: 065
     Dates: start: 20090330, end: 20090407
  2. HERBALIFE [Suspect]
     Indication: DRUG USE FOR UNKNOWN INDICATION
     Route: 065
     Dates: start: 20060101, end: 20090518
  3. MYCOSTATIN [Suspect]
     Indication: APHTHOUS STOMATITIS
     Route: 065
     Dates: start: 20090330, end: 20090407

REACTIONS (2)
  - HEPATITIS CHOLESTATIC [None]
  - RENAL IMPAIRMENT [None]
